FAERS Safety Report 8519184-9 (Version None)
Quarter: 2012Q3

REPORT INFORMATION
  Report Type: 
  Country: None (occurrence: None)
  Receive Date: 20120718
  Receipt Date: 20120711
  Transmission Date: 20120928
  Serious: Yes (Hospitalization)
  Sender: FDA-Public Use
  Company Number: US-ABBOTT-12P-163-0955367-00

PATIENT
  Age: 18 Year
  Sex: Male

DRUGS (2)
  1. HUMIRA [Suspect]
     Indication: COLITIS ULCERATIVE
     Dates: start: 20100601, end: 20110801
  2. HUMIRA [Suspect]
     Indication: CROHN'S DISEASE
     Dates: start: 20120711

REACTIONS (7)
  - OFF LABEL USE [None]
  - CROHN'S DISEASE [None]
  - HAEMATOCHEZIA [None]
  - RECTAL HAEMORRHAGE [None]
  - INTENTIONAL DRUG MISUSE [None]
  - VOMITING [None]
  - COLITIS ULCERATIVE [None]
